FAERS Safety Report 23773276 (Version 1)
Quarter: 2024Q2

REPORT INFORMATION
  Report Type: Spontaneous
  Country: GB (occurrence: GB)
  Receive Date: 20240423
  Receipt Date: 20240423
  Transmission Date: 20240716
  Serious: Yes (Life-Threatening)
  Sender: FDA-Public Use
  Company Number: None

PATIENT
  Age: 23 Year
  Sex: Female

DRUGS (11)
  1. LEVOFLOXACIN [Suspect]
     Active Substance: LEVOFLOXACIN
     Route: 065
  2. MAGNESIUM [Concomitant]
     Active Substance: MAGNESIUM
  3. TEICOPLANIN [Suspect]
     Active Substance: TEICOPLANIN
     Route: 065
  4. DEXAMETHASONE [Concomitant]
     Active Substance: DEXAMETHASONE
  5. METARAMINOL [Concomitant]
     Active Substance: METARAMINOL
     Dosage: BOLUS
  6. LIDOCAINE [Concomitant]
     Active Substance: LIDOCAINE
     Route: 042
  7. FENTANYL [Concomitant]
     Active Substance: FENTANYL\FENTANYL CITRATE
  8. PROPOFOL [Concomitant]
     Active Substance: PROPOFOL
  9. CISATRACURIUM [Concomitant]
     Active Substance: CISATRACURIUM
  10. EPINEPHRINE [Concomitant]
     Active Substance: EPINEPHRINE
     Dosage: X2
  11. HYDROCORTISONE [Concomitant]
     Active Substance: HYDROCORTISONE

REACTIONS (1)
  - Anaphylactic reaction [Recovered/Resolved]
